FAERS Safety Report 5647606-X (Version None)
Quarter: 2008Q1

REPORT INFORMATION
  Report Type: 
  Country: None (occurrence: None)
  Receive Date: 20080303
  Receipt Date: 20080220
  Transmission Date: 20080703
  Serious: Yes (Other)
  Sender: FDA-Public Use
  Company Number: IN-PFIZER INC-2008015701

PATIENT
  Age: 28 Year
  Sex: Male

DRUGS (1)
  1. CELECOXIB [Suspect]
     Indication: TOOTHACHE

REACTIONS (1)
  - ERECTILE DYSFUNCTION [None]
